FAERS Safety Report 9557867 (Version 1)
Quarter: 2013Q3

REPORT INFORMATION
  Report Type: Report from Study
  Country: TW (occurrence: TW)
  Receive Date: 20130926
  Receipt Date: 20130926
  Transmission Date: 20140515
  Serious: Yes (Hospitalization)
  Sender: FDA-Public Use
  Company Number: PHHY2012TW120545

PATIENT
  Age: 48 Year
  Sex: Female

DRUGS (20)
  1. AMN107 [Suspect]
  2. ALPRAZOLAM [Concomitant]
     Indication: INSOMNIA
     Dates: end: 20110928
  3. AMLODIPINE BESYLATE [Concomitant]
     Indication: HYPERTENSION
  4. BISOPROLOL [Concomitant]
     Indication: HYPERTENSION
  5. CO-DIOVAN [Concomitant]
     Indication: HYPERTENSION
  6. GLUCOMET                           /01182201/ [Concomitant]
     Indication: DIABETES MELLITUS
     Dosage: UNK
     Dates: end: 20110308
  7. ROSIGLITAZONE MALEATE [Concomitant]
     Indication: DIABETES MELLITUS
     Dosage: UNK
     Dates: end: 20110707
  8. MAGNESIUM OXIDE [Concomitant]
     Indication: PROPHYLAXIS
     Dates: start: 20110208, end: 20110214
  9. CEPHRADINE [Concomitant]
     Indication: VAGINAL INFECTION
     Dates: start: 20110208, end: 20110214
  10. NISTATIN [Concomitant]
     Indication: VAGINAL INFECTION
     Dates: start: 20110208, end: 20110220
  11. MYCOMB CREAM [Concomitant]
     Indication: VAGINAL INFECTION
     Dates: start: 20110208, end: 20110220
  12. METFORMIN [Concomitant]
     Indication: DIABETES MELLITUS
     Dates: start: 20120309, end: 20120731
  13. GLIMEPIRIDE [Concomitant]
     Indication: DIABETES MELLITUS
     Dates: start: 20110309, end: 20110706
  14. ACARBOSE [Concomitant]
     Indication: DIABETES MELLITUS
     Dates: start: 20110309, end: 20110505
  15. ACETAMINOPHEN [Concomitant]
     Indication: PAIN IN EXTREMITY
     Dates: start: 20110518, end: 20110614
  16. GADODIAMIDE [Concomitant]
     Indication: NUCLEAR MAGNETIC RESONANCE IMAGING
     Dates: start: 20120906, end: 20120906
  17. PIOGLITAZONE [Concomitant]
     Indication: DIABETES MELLITUS
     Dates: start: 20120804, end: 20120919
  18. ROSUVASTATIN [Concomitant]
     Indication: HYPERLIPIDAEMIA
     Dates: start: 20120907, end: 20120919
  19. INSULIN [Concomitant]
     Indication: DIABETES MELLITUS
     Dates: start: 20120907, end: 20120907
  20. ESTAZOLAM [Concomitant]
     Indication: INSOMNIA
     Dates: start: 20120920, end: 20121017

REACTIONS (4)
  - Cerebral ischaemia [Unknown]
  - Hypokalaemia [Unknown]
  - Vertigo [Unknown]
  - Vomiting [Unknown]
